FAERS Safety Report 14106809 (Version 1)
Quarter: 2017Q4

REPORT INFORMATION
  Report Type: Spontaneous
  Country: US (occurrence: US)
  Receive Date: 20171018
  Receipt Date: 20171018
  Transmission Date: 20180321
  Serious: Yes (Other)
  Sender: FDA-Public Use
  Company Number: None

PATIENT
  Age: 6 Year
  Sex: Female
  Weight: 23.8 kg

DRUGS (1)
  1. MAGNESIUM CITRATE SALINE LAXATIVE ORAL SOLUTION [Suspect]
     Active Substance: MAGNESIUM CITRATE
     Indication: LAXATIVE SUPPORTIVE CARE
     Dosage: ?          OTHER FREQUENCY:ONCE;?
     Route: 048
     Dates: start: 20171009, end: 20171009

REACTIONS (3)
  - Product preparation error [None]
  - Oral mucosal blistering [None]
  - Rash [None]

NARRATIVE: CASE EVENT DATE: 20171009
